FAERS Safety Report 7430110-6 (Version None)
Quarter: 2011Q2

REPORT INFORMATION
  Report Type: 
  Country: None (occurrence: None)
  Receive Date: 20110421
  Receipt Date: 20110103
  Transmission Date: 20111010
  Serious: No
  Sender: FDA-Public Use
  Company Number: US-ASTRAZENECA-2010SE50513

PATIENT
  Age: 35 Year
  Sex: Male

DRUGS (3)
  1. LISINOPRIL [Concomitant]
     Indication: HYPERTENSION
  2. TOPROL-XL [Suspect]
     Indication: HYPERTENSION
     Route: 048
  3. TOPROL-XL [Suspect]
     Route: 048
     Dates: start: 20101018

REACTIONS (1)
  - HEART RATE ABNORMAL [None]
